FAERS Safety Report 6327534-7 (Version None)
Quarter: 2009Q3

REPORT INFORMATION
  Report Type: 
  Country: None (occurrence: None)
  Receive Date: 20090825
  Receipt Date: 20090819
  Transmission Date: 20100115
  Serious: Yes (Other)
  Sender: FDA-Public Use
  Company Number: PHEH2009US09585

PATIENT
  Age: 78 Year
  Sex: Female
  Weight: 51.701 kg

DRUGS (1)
  1. RECLAST [Suspect]
     Dosage: 5 MG, YEARLY
     Route: 042
     Dates: start: 20080820

REACTIONS (2)
  - BONE PAIN [None]
  - EYE SWELLING [None]
